FAERS Safety Report 10818326 (Version 1)
Quarter: 2015Q1

REPORT INFORMATION
  Report Type: Spontaneous
  Country: US (occurrence: US)
  Receive Date: 20150218
  Receipt Date: 20150218
  Transmission Date: 20150721
  Serious: No
  Sender: FDA-Public Use
  Company Number: US-EISAI MEDICAL RESEARCH-E2080-00753-SPO-US

PATIENT
  Sex: Male

DRUGS (3)
  1. BANZEL [Suspect]
     Active Substance: RUFINAMIDE
     Dosage: DOSE REDUCED (UNSPECIFIED)
     Route: 048
  2. BANZEL [Suspect]
     Active Substance: RUFINAMIDE
     Indication: LENNOX-GASTAUT SYNDROME
     Dosage: UNKNOWN
     Route: 048
  3. ONFI [Concomitant]
     Active Substance: CLOBAZAM
     Dosage: UNKNOWN

REACTIONS (1)
  - Deafness [Recovering/Resolving]
